FAERS Safety Report 14034020 (Version 2)
Quarter: 2017Q4

REPORT INFORMATION
  Report Type: Spontaneous
  Country: US (occurrence: US)
  Receive Date: 20171003
  Receipt Date: 20171011
  Transmission Date: 20180321
  Serious: Yes (Other)
  Sender: FDA-Public Use
  Company Number: US-NOVOPROD-565809

PATIENT
  Age: 53 Year
  Sex: Male
  Weight: 102.4 kg

DRUGS (4)
  1. NOVOLOG [Suspect]
     Active Substance: INSULIN ASPART
     Dosage: BOLUSED OVER 120 UNITS
     Route: 058
     Dates: start: 20170827, end: 20170827
  2. NOVOLOG [Suspect]
     Active Substance: INSULIN ASPART
     Dosage: USED A SYRINGE TO ADMINISTER THE INSULIN
     Route: 058
     Dates: start: 20170827, end: 20170827
  3. NOVOLOG [Suspect]
     Active Substance: INSULIN ASPART
     Indication: TYPE 1 DIABETES MELLITUS
     Dosage: 60-70 UNITS PER DAY ON AVERAGE
     Route: 058
     Dates: start: 2015, end: 20170827
  4. NOVOLOG [Suspect]
     Active Substance: INSULIN ASPART
     Dosage: SLIDING SCALE
     Route: 058
     Dates: start: 20170827

REACTIONS (2)
  - Diabetic ketoacidosis [Recovered/Resolved]
  - Product quality issue [Recovered/Resolved]

NARRATIVE: CASE EVENT DATE: 20170827
